FAERS Safety Report 9018093 (Version 3)
Quarter: 2013Q1

REPORT INFORMATION
  Report Type: Spontaneous
  Country: DK (occurrence: DK)
  Receive Date: 20130117
  Receipt Date: 20130211
  Transmission Date: 20140127
  Serious: Yes (Other)
  Sender: FDA-Public Use
  Company Number: DK-BAXTER-2013BAX001536

PATIENT
  Sex: Female

DRUGS (15)
  1. NAVELBINE [Suspect]
     Indication: BREAST CANCER METASTATIC
     Route: 065
     Dates: start: 201004, end: 201107
  2. SENDOXAN [Suspect]
     Indication: BREAST CANCER METASTATIC
     Route: 065
  3. EPIRUBICIN [Suspect]
     Indication: BREAST CANCER METASTATIC
     Route: 065
  4. FLUOROURACIL [Suspect]
     Indication: BREAST CANCER METASTATIC
     Route: 065
  5. TAXOTERE [Suspect]
     Indication: PRODUCT USED FOR UNKNOWN INDICATION
     Route: 065
     Dates: start: 200802
  6. TAXOTERE [Suspect]
     Route: 065
     Dates: start: 201008
  7. TAXOTERE [Suspect]
     Route: 065
     Dates: start: 201101
  8. LAPATINIB [Suspect]
     Indication: PRODUCT USED FOR UNKNOWN INDICATION
     Route: 065
  9. TAXOL [Suspect]
     Indication: PRODUCT USED FOR UNKNOWN INDICATION
     Route: 065
  10. HERCEPTIN [Suspect]
     Indication: BREAST CANCER METASTATIC
     Route: 065
     Dates: start: 200802
  11. HERCEPTIN [Suspect]
     Route: 065
     Dates: start: 201008
  12. HERCEPTIN [Suspect]
     Route: 065
     Dates: start: 201101
  13. XELODA [Suspect]
     Indication: BREAST CANCER METASTATIC
     Route: 065
     Dates: start: 20081025, end: 20100416
  14. BONDRONAT [Suspect]
     Indication: PRODUCT USED FOR UNKNOWN INDICATION
     Route: 065
     Dates: start: 201101
  15. NEXIUM [Concomitant]
     Indication: GASTROOESOPHAGEAL REFLUX DISEASE
     Route: 048
     Dates: start: 20090925

REACTIONS (4)
  - Breast cancer [Not Recovered/Not Resolved]
  - Joint ankylosis [Unknown]
  - Palmar-plantar erythrodysaesthesia syndrome [Not Recovered/Not Resolved]
  - Dermatitis [Recovering/Resolving]
